FAERS Safety Report 6300300-4 (Version None)
Quarter: 2009Q3

REPORT INFORMATION
  Report Type: 
  Country: None (occurrence: None)
  Receive Date: 20090803
  Receipt Date: 20090721
  Transmission Date: 20100115
  Serious: Yes (Other)
  Sender: FDA-Public Use
  Company Number: 8049379

PATIENT
  Age: 61 Year
  Sex: Male

DRUGS (4)
  1. XYZAL [Suspect]
     Dosage: 1 DF 1/D PO
     Route: 048
     Dates: start: 20080321, end: 20080522
  2. PIASCLEDINE /01305801/ [Suspect]
     Dosage: 1 DF 1/D PO
     Route: 048
     Dates: start: 20080117, end: 20080522
  3. NASONEX [Suspect]
     Dosage: 4 DF /D NAS
     Route: 045
     Dates: start: 20080321, end: 20080522
  4. PARACETAMOL [Concomitant]

REACTIONS (5)
  - ABDOMINAL PAIN UPPER [None]
  - BLOOD AMYLASE INCREASED [None]
  - DIARRHOEA [None]
  - HEPATITIS [None]
  - LIPASE INCREASED [None]
